FAERS Safety Report 13536040 (Version 1)
Quarter: 2017Q2

REPORT INFORMATION
  Report Type: Report from Study
  Country: US (occurrence: US)
  Receive Date: 20170511
  Receipt Date: 20170511
  Transmission Date: 20170830
  Serious: Yes (Other)
  Sender: FDA-Public Use
  Company Number: US-ACCORD-051208

PATIENT
  Age: 76 Year
  Sex: Male

DRUGS (1)
  1. GEMCITABINE/GEMCITABINE HYDROCHLORIDE [Suspect]
     Active Substance: GEMCITABINE\GEMCITABINE HYDROCHLORIDE
     Indication: ADENOCARCINOMA PANCREAS

REACTIONS (6)
  - Lung disorder [None]
  - Post thrombotic syndrome [Recovering/Resolving]
  - Thrombocytopenia [Unknown]
  - Leukopenia [Unknown]
  - Pleural effusion [None]
  - Pleural effusion [Not Recovered/Not Resolved]
